FAERS Safety Report 4926970-0 (Version None)
Quarter: 2006Q1

REPORT INFORMATION
  Report Type: 
  Country: None (occurrence: None)
  Receive Date: 20060228
  Receipt Date: 20050926
  Transmission Date: 20060701
  Serious: No
  Sender: FDA-Public Use
  Company Number: US-GLAXOSMITHKLINE-A0575897A

PATIENT
  Age: 66 Year
  Sex: Female

DRUGS (5)
  1. LAMICTAL [Suspect]
     Indication: BIPOLAR DISORDER
     Dosage: 25MG PER DAY
     Route: 048
     Dates: start: 20050923
  2. GLYBURIDE [Concomitant]
  3. AVANDIA [Concomitant]
  4. LISINOPRIL [Concomitant]
  5. CRESTOR [Concomitant]

REACTIONS (2)
  - FEELING ABNORMAL [None]
  - TREMOR [None]
